FAERS Safety Report 5292249-3 (Version None)
Quarter: 2007Q2

REPORT INFORMATION
  Report Type: 
  Country: None (occurrence: None)
  Receive Date: 20070410
  Receipt Date: 20070312
  Transmission Date: 20071010
  Serious: Yes (Other)
  Sender: FDA-Public Use
  Company Number: US-SANOFI-SYNTHELABO-A03200702318

PATIENT
  Sex: Male

DRUGS (3)
  1. NEXIUM [Concomitant]
     Dosage: UNK
     Route: 065
  2. DITROPAN XL [Concomitant]
     Dosage: UNK
     Route: 065
  3. AMBIEN [Suspect]
     Indication: INSOMNIA
     Route: 048

REACTIONS (4)
  - ABNORMAL BEHAVIOUR [None]
  - CONFUSIONAL STATE [None]
  - FEELING ABNORMAL [None]
  - ROAD TRAFFIC ACCIDENT [None]
